FAERS Safety Report 10313262 (Version 1)
Quarter: 2014Q3

REPORT INFORMATION
  Report Type: Spontaneous
  Country: US (occurrence: None)
  Receive Date: 20140717
  Receipt Date: 20140717
  Transmission Date: 20150326
  Serious: No
  Sender: FDA-Public Use
  Company Number: None

PATIENT
  Age: 43 Year
  Sex: Female
  Weight: 70.31 kg

DRUGS (1)
  1. NASONEX [Suspect]
     Active Substance: MOMETASONE FUROATE
     Indication: MULTIPLE ALLERGIES
     Dosage: 2 SPRAYS IN EACH NOSTRIL DAILY?ONCE DAILY?NOSE
     Route: 045
     Dates: start: 20140606, end: 20140713

REACTIONS (3)
  - Anxiety [None]
  - Panic attack [None]
  - Vitreous floaters [None]

NARRATIVE: CASE EVENT DATE: 20140713
